FAERS Safety Report 25524491 (Version 1)
Quarter: 2025Q3

REPORT INFORMATION
  Report Type: Spontaneous
  Country: IN (occurrence: IN)
  Receive Date: 20250707
  Receipt Date: 20250707
  Transmission Date: 20251020
  Serious: Yes (Hospitalization)
  Sender: MYLAN
  Company Number: IN-MYLANLABS-2025M1055001

PATIENT
  Age: 49 Year
  Sex: Male

DRUGS (36)
  1. ACETAMINOPHEN [Suspect]
     Active Substance: ACETAMINOPHEN
     Indication: Pyrexia
  2. ACETAMINOPHEN [Suspect]
     Active Substance: ACETAMINOPHEN
     Route: 065
  3. ACETAMINOPHEN [Suspect]
     Active Substance: ACETAMINOPHEN
     Route: 065
  4. ACETAMINOPHEN [Suspect]
     Active Substance: ACETAMINOPHEN
  5. METHYLPREDNISOLONE [Suspect]
     Active Substance: METHYLPREDNISOLONE
     Indication: COVID-19 pneumonia
  6. METHYLPREDNISOLONE [Suspect]
     Active Substance: METHYLPREDNISOLONE
  7. METHYLPREDNISOLONE [Suspect]
     Active Substance: METHYLPREDNISOLONE
     Route: 048
  8. METHYLPREDNISOLONE [Suspect]
     Active Substance: METHYLPREDNISOLONE
     Route: 048
  9. METHYLPREDNISOLONE [Suspect]
     Active Substance: METHYLPREDNISOLONE
  10. METHYLPREDNISOLONE [Suspect]
     Active Substance: METHYLPREDNISOLONE
  11. METHYLPREDNISOLONE [Suspect]
     Active Substance: METHYLPREDNISOLONE
     Route: 065
  12. METHYLPREDNISOLONE [Suspect]
     Active Substance: METHYLPREDNISOLONE
     Route: 065
  13. NINTEDANIB [Suspect]
     Active Substance: NINTEDANIB
     Indication: COVID-19 pneumonia
  14. NINTEDANIB [Suspect]
     Active Substance: NINTEDANIB
     Route: 065
  15. NINTEDANIB [Suspect]
     Active Substance: NINTEDANIB
     Route: 065
  16. NINTEDANIB [Suspect]
     Active Substance: NINTEDANIB
  17. BUDESONIDE [Suspect]
     Active Substance: BUDESONIDE
     Indication: COVID-19 pneumonia
  18. BUDESONIDE [Suspect]
     Active Substance: BUDESONIDE
     Route: 065
  19. BUDESONIDE [Suspect]
     Active Substance: BUDESONIDE
     Route: 065
  20. BUDESONIDE [Suspect]
     Active Substance: BUDESONIDE
  21. MEFENAMIC ACID [Suspect]
     Active Substance: MEFENAMIC ACID
     Indication: Pyrexia
  22. MEFENAMIC ACID [Suspect]
     Active Substance: MEFENAMIC ACID
     Route: 065
  23. MEFENAMIC ACID [Suspect]
     Active Substance: MEFENAMIC ACID
     Route: 065
  24. MEFENAMIC ACID [Suspect]
     Active Substance: MEFENAMIC ACID
  25. NAPROXEN [Suspect]
     Active Substance: NAPROXEN
     Indication: Pyrexia
  26. NAPROXEN [Suspect]
     Active Substance: NAPROXEN
     Route: 065
  27. NAPROXEN [Suspect]
     Active Substance: NAPROXEN
     Route: 065
  28. NAPROXEN [Suspect]
     Active Substance: NAPROXEN
  29. RITUXIMAB [Concomitant]
     Active Substance: RITUXIMAB
     Indication: Secondary progressive multiple sclerosis
  30. RITUXIMAB [Concomitant]
     Active Substance: RITUXIMAB
  31. RITUXIMAB [Concomitant]
     Active Substance: RITUXIMAB
     Route: 065
  32. RITUXIMAB [Concomitant]
     Active Substance: RITUXIMAB
     Route: 065
  33. RITUXIMAB [Concomitant]
     Active Substance: RITUXIMAB
  34. RITUXIMAB [Concomitant]
     Active Substance: RITUXIMAB
  35. RITUXIMAB [Concomitant]
     Active Substance: RITUXIMAB
     Route: 065
  36. RITUXIMAB [Concomitant]
     Active Substance: RITUXIMAB
     Route: 065

REACTIONS (3)
  - Drug ineffective [Unknown]
  - Drug ineffective for unapproved indication [Unknown]
  - Off label use [Unknown]
